FAERS Safety Report 12042735 (Version 2)
Quarter: 2016Q1

REPORT INFORMATION
  Report Type: Spontaneous
  Country: IT (occurrence: IT)
  Receive Date: 20160208
  Receipt Date: 20160218
  Transmission Date: 20160526
  Serious: Yes (Hospitalization, Other)
  Sender: FDA-Public Use
  Company Number: IT-PFIZER INC-2016071845

PATIENT
  Age: 86 Year
  Sex: Female

DRUGS (3)
  1. JURNISTA [Suspect]
     Active Substance: HYDROMORPHONE HYDROCHLORIDE
     Indication: PROCEDURAL PAIN
     Dosage: 2 DF, DAILY
     Route: 048
     Dates: start: 20150101, end: 20151205
  2. LANSOPRAZOLE. [Concomitant]
     Active Substance: LANSOPRAZOLE
     Dosage: 30 MG, UNK
     Route: 048
  3. GABAPENTIN. [Suspect]
     Active Substance: GABAPENTIN
     Indication: PROCEDURAL PAIN
     Dosage: 1200 MG, DAILY
     Route: 048
     Dates: start: 20150101, end: 20151205

REACTIONS (2)
  - Product use issue [Unknown]
  - Sopor [Unknown]

NARRATIVE: CASE EVENT DATE: 20150101
